FAERS Safety Report 18591823 (Version 1)
Quarter: 2020Q4

REPORT INFORMATION
  Report Type: Spontaneous
  Country: IT (occurrence: IT)
  Receive Date: 20201208
  Receipt Date: 20201208
  Transmission Date: 20210114
  Serious: Yes (Other)
  Sender: FDA-Public Use
  Company Number: IT-PFIZER INC-2020480347

PATIENT
  Age: 6 Year
  Sex: Male
  Weight: 24 kg

DRUGS (7)
  1. ANTRA [OMEPRAZOLE] [Concomitant]
     Active Substance: OMEPRAZOLE
     Dosage: 20 MG
     Route: 042
  2. ZOFRAN [Concomitant]
     Active Substance: ONDANSETRON HYDROCHLORIDE
     Dosage: 5 MG
     Route: 042
  3. CARBOPLATIN. [Suspect]
     Active Substance: CARBOPLATIN
     Indication: HEPATIC NEOPLASM
     Dosage: 356 MG, CYCLIC
     Route: 042
     Dates: start: 20200320, end: 20200324
  4. HOLOXAN [Concomitant]
     Active Substance: IFOSFAMIDE
     Route: 042
  5. UROMITEXAN [Concomitant]
     Active Substance: MESNA
     Dosage: 1602 MG
     Route: 042
  6. DECADRON (DEXAMETHASONE SODIUM PHOSPHATE) [Concomitant]
     Active Substance: DEXAMETHASONE SODIUM PHOSPHATE
     Dosage: 8 MG
     Route: 042
  7. VEPESID [Suspect]
     Active Substance: ETOPOSIDE
     Indication: HEPATIC NEOPLASM
     Dosage: 89 MG, CYCLIC
     Route: 042
     Dates: start: 20200320, end: 20200323

REACTIONS (3)
  - Off label use [Recovered/Resolved]
  - Pyrexia [Recovered/Resolved]
  - Headache [Recovered/Resolved]

NARRATIVE: CASE EVENT DATE: 20200320
